FAERS Safety Report 6026238-8 (Version None)
Quarter: 2008Q4

REPORT INFORMATION
  Report Type: 
  Country: None (occurrence: None)
  Receive Date: 20081230
  Receipt Date: 20081219
  Transmission Date: 20090506
  Serious: Yes (Life-Threatening, Hospitalization)
  Sender: FDA-Public Use
  Company Number: 2008-04776

PATIENT
  Age: 58 Year
  Sex: Female
  Weight: 84 kg

DRUGS (1)
  1. VELCADE [Suspect]
     Indication: MULTIPLE MYELOMA
     Dosage: 2.5 MG UNK SUBCUTANEOUS
     Route: 058
     Dates: start: 20081023, end: 20081215

REACTIONS (5)
  - HYPERGLYCAEMIA [None]
  - INTESTINAL OBSTRUCTION [None]
  - NEUTROPENIA [None]
  - PARAESTHESIA [None]
  - THROMBOCYTOPENIA [None]
